FAERS Safety Report 18385456 (Version 3)
Quarter: 2020Q4

REPORT INFORMATION
  Report Type: Spontaneous
  Country: US (occurrence: US)
  Receive Date: 20201015
  Receipt Date: 20201118
  Transmission Date: 20210114
  Serious: Yes (Hospitalization)
  Sender: FDA-Public Use
  Company Number: US-ASTRAZENECA-2020SF31506

PATIENT
  Sex: Female
  Weight: 44.5 kg

DRUGS (5)
  1. SYMBICORT [Suspect]
     Active Substance: BUDESONIDE\FORMOTEROL FUMARATE DIHYDRATE
     Indication: CHRONIC OBSTRUCTIVE PULMONARY DISEASE
     Dosage: 160/4.5 MCG TAKE TWO PUFFS TWICE DAILY
     Route: 055
  2. COMBIVENT [Concomitant]
     Active Substance: ALBUTEROL SULFATE\IPRATROPIUM BROMIDE
     Indication: INHALATION THERAPY
     Route: 065
  3. SPIRIVA [Concomitant]
     Active Substance: TIOTROPIUM BROMIDE MONOHYDRATE
     Route: 065
  4. SYMBICORT [Suspect]
     Active Substance: BUDESONIDE\FORMOTEROL FUMARATE DIHYDRATE
     Indication: ASTHMA
     Dosage: 160/4.5 MCG TAKE TWO PUFFS TWICE DAILY
     Route: 055
  5. ADVAIR HFA [Concomitant]
     Active Substance: FLUTICASONE PROPIONATE\SALMETEROL XINAFOATE
     Route: 065

REACTIONS (26)
  - Asthma [Unknown]
  - Pneumonia [Unknown]
  - Bronchitis [Unknown]
  - Hypoaesthesia oral [Unknown]
  - Device issue [Unknown]
  - Bile acid malabsorption [Unknown]
  - Ear congestion [Not Recovered/Not Resolved]
  - Foreign body reaction [Unknown]
  - Insomnia [Unknown]
  - Sepsis [Recovered/Resolved]
  - Pulmonary embolism [Unknown]
  - Visual impairment [Unknown]
  - Hyperacusis [Unknown]
  - Amnesia [Unknown]
  - Urinary tract infection [Unknown]
  - Dysphonia [Unknown]
  - Alopecia [Unknown]
  - Hypoaesthesia [Unknown]
  - Frequent bowel movements [Unknown]
  - Pain in jaw [Unknown]
  - Drug dose omission by device [Unknown]
  - Device malfunction [Unknown]
  - Chronic obstructive pulmonary disease [Unknown]
  - Multiple allergies [Unknown]
  - Oral herpes [Unknown]
  - Purpura [Unknown]
